FAERS Safety Report 5050003-1 (Version None)
Quarter: 2006Q2

REPORT INFORMATION
  Report Type: 
  Country: None (occurrence: None)
  Receive Date: 20060601
  Receipt Date: 20060214
  Transmission Date: 20061013
  Serious: No
  Sender: FDA-Public Use
  Company Number: US200602003026

PATIENT
  Age: 31 Year
  Sex: Female

DRUGS (2)
  1. CYMBALTA [Suspect]
     Indication: NERVE INJURY
     Dosage: 30 MG, DAILY (1/D)
     Dates: start: 20060101
  2. PROPYLTHIOURACIL [Concomitant]

REACTIONS (1)
  - OLIGOMENORRHOEA [None]
